FAERS Safety Report 9669277 (Version 1)
Quarter: 2013Q4

REPORT INFORMATION
  Report Type: Spontaneous
  Country: JP (occurrence: None)
  Receive Date: 20131101
  Receipt Date: 20131101
  Transmission Date: 20140711
  Serious: Yes (Hospitalization)
  Sender: FDA-Public Use
  Company Number: 2013-003142

PATIENT
  Age: 66 Year
  Sex: Female

DRUGS (4)
  1. ACTONEL [Suspect]
     Indication: OSTEOPOROSIS
     Dosage: ONCE MONTHLY
     Route: 048
     Dates: start: 20130901, end: 20130901
  2. MICARDIS (TELMISARTAN) [Concomitant]
  3. NORVASC (AMLODIPINE BESILATE) [Concomitant]
  4. TOFRANIL (IMIPRAMINE HYDROCHLORIDE) [Concomitant]

REACTIONS (4)
  - Headache [None]
  - Malaise [None]
  - Nausea [None]
  - Diarrhoea [None]
